FAERS Safety Report 8544604-3 (Version None)
Quarter: 2012Q3

REPORT INFORMATION
  Report Type: 
  Country: None (occurrence: None)
  Receive Date: 20120727
  Receipt Date: 20120723
  Transmission Date: 20120928
  Serious: Yes (Death, Life-Threatening, Hospitalization)
  Sender: FDA-Public Use
  Company Number: CA-TEVA-350581USA

PATIENT
  Sex: Male
  Weight: 106.9 kg

DRUGS (15)
  1. RAMIPRIL [Concomitant]
     Indication: HYPERTENSION
     Dosage: 5 MILLIGRAM;
     Route: 048
     Dates: start: 20111201
  2. TREANDA [Suspect]
     Indication: NON-HODGKIN'S LYMPHOMA UNSPECIFIED HISTOLOGY INDOLENT
     Dosage: CYCLE 1
     Route: 042
     Dates: start: 20120706
  3. FOLIC ACID [Concomitant]
     Indication: VITAMIN SUPPLEMENTATION
     Dosage: 5 MILLIGRAM;
     Route: 048
     Dates: start: 20120706
  4. BUDESONIDE [Concomitant]
     Indication: COUGH
     Dosage: 2 MILLIGRAM;
     Route: 048
     Dates: start: 20120703
  5. SEPTRA [Concomitant]
     Indication: INFECTION PROPHYLAXIS
     Dosage: .8571 DOSAGE FORMS; EVERY MONDAY, WEDNESDAY, FRIDAY
     Route: 048
     Dates: start: 20120704
  6. ACYCLOVIR [Concomitant]
     Indication: ANTIVIRAL PROPHYLAXIS
     Dosage: 800 MILLIGRAM;
     Dates: start: 20101101
  7. VITAMIN B-12 [Concomitant]
     Indication: VITAMIN SUPPLEMENTATION
     Dosage: 1200 MILLIGRAM;
     Route: 048
     Dates: start: 20120706
  8. POTASSIUM CHLORIDE [Concomitant]
  9. COMBIVENT [Concomitant]
     Indication: COUGH
     Dosage: 10 ML;
     Route: 048
     Dates: start: 20120704
  10. VORICONAZOLE [Concomitant]
     Indication: ANTIVIRAL PROPHYLAXIS
     Dosage: 800 MILLIGRAM;
     Route: 048
  11. CODEINE [Concomitant]
     Indication: COUGH
     Dosage: 15-30 MG EVERY 4 HOURS AS NEEDED
     Route: 048
  12. ALLOPURINOL [Concomitant]
     Indication: PROPHYLAXIS
     Dosage: 300 MILLIGRAM;
     Route: 048
     Dates: start: 20120706
  13. RANITIDINE [Concomitant]
     Indication: DYSPEPSIA
     Dosage: 300 MILLIGRAM;
     Route: 048
     Dates: start: 20120704
  14. METFORMIN HYDROCHLORIDE [Concomitant]
     Indication: TYPE 2 DIABETES MELLITUS
     Dosage: 500 MILLIGRAM;
     Route: 048
     Dates: start: 20060101
  15. AMOXICILLIN AND CLAVULANATE POTASSIUM [Concomitant]
     Indication: INFECTION PROPHYLAXIS
     Dosage: 1500 MILLIGRAM;
     Route: 048

REACTIONS (1)
  - MULTI-ORGAN FAILURE [None]
